FAERS Safety Report 12432105 (Version 1)
Quarter: 2016Q2

REPORT INFORMATION
  Report Type: Spontaneous
  Country: US (occurrence: US)
  Receive Date: 20160603
  Receipt Date: 20160603
  Transmission Date: 20160815
  Serious: No
  Sender: FDA-Public Use
  Company Number: US-THE MEDICINES COMPANY-US-MDCO-16-00058

PATIENT
  Sex: Female

DRUGS (3)
  1. ORBACTIV [Suspect]
     Active Substance: ORITAVANCIN
     Indication: STAPHYLOCOCCAL INFECTION
     Dosage: NOT REPORTED
     Route: 041
     Dates: start: 20160203
  2. LEVAQUIN [Concomitant]
     Active Substance: LEVOFLOXACIN
     Indication: STAPHYLOCOCCAL INFECTION
     Dosage: NOT REPORTED
     Dates: end: 20160203
  3. ZYVOX [Concomitant]
     Active Substance: LINEZOLID
     Indication: STAPHYLOCOCCAL INFECTION
     Dosage: NOT REPORTED
     Dates: end: 20160203

REACTIONS (16)
  - Tooth disorder [Unknown]
  - Peripheral swelling [Unknown]
  - Skin infection [Unknown]
  - Alopecia [Unknown]
  - Asthenia [Unknown]
  - Diarrhoea [Unknown]
  - Skin burning sensation [Unknown]
  - General physical condition abnormal [Unknown]
  - Abdominal pain upper [Unknown]
  - Varicose vein [Unknown]
  - Spinal pain [Unknown]
  - Pain [Unknown]
  - Gait disturbance [Unknown]
  - Drug ineffective [Unknown]
  - Hypoaesthesia [Unknown]
  - Pain in extremity [Unknown]
